FAERS Safety Report 8986599 (Version 3)
Quarter: 2013Q2

REPORT INFORMATION
  Report Type: Spontaneous
  Country: CO (occurrence: CO)
  Receive Date: 20121227
  Receipt Date: 20130617
  Transmission Date: 20140414
  Serious: No
  Sender: FDA-Public Use
  Company Number: CO-MERCK-1212COL010151

PATIENT
  Age: 57 Year
  Sex: Female

DRUGS (6)
  1. VICTRELIS [Suspect]
     Indication: HEPATITIS C
     Dosage: 2400 MG, QD
     Route: 048
     Dates: start: 20121106
  2. VICTRELIS [Suspect]
     Dosage: 2400 MG, QD
     Route: 048
  3. PEG-INTRON [Suspect]
     Indication: HEPATITIS C
     Dosage: 80 MICROGRAM, QW
     Route: 058
     Dates: start: 20121008
  4. PEG-INTRON [Suspect]
     Dosage: 80 MICROGRAM, QW
     Route: 058
  5. REBETOL [Suspect]
     Indication: HEPATITIS C
     Dosage: 800 MG, QD
     Route: 048
     Dates: start: 20121008
  6. REBETOL [Suspect]
     Dosage: 800 MG, QD
     Route: 048

REACTIONS (6)
  - Neutropenia [Unknown]
  - Asthenia [Unknown]
  - Fatigue [Unknown]
  - Anaemia [Unknown]
  - Leukopenia [Unknown]
  - Neutropenia [Unknown]
